FAERS Safety Report 24844679 (Version 1)
Quarter: 2025Q1

REPORT INFORMATION
  Report Type: Spontaneous
  Country: US (occurrence: US)
  Receive Date: 20250115
  Receipt Date: 20250115
  Transmission Date: 20250409
  Serious: No
  Sender: DR REDDYS
  Company Number: US-DRL-USA-USA/2025/01/000457

PATIENT
  Age: 78 Year
  Sex: Female
  Weight: 108 kg

DRUGS (1)
  1. MEMANTINE HYDROCHLORIDE [Suspect]
     Active Substance: MEMANTINE HYDROCHLORIDE
     Indication: Dementia
     Dosage: 2 TABLETS IN THE MORNING AND 2 IN THE EVENING.
     Route: 065
     Dates: start: 20241228

REACTIONS (2)
  - Peripheral swelling [Unknown]
  - Hypertension [Unknown]
